FAERS Safety Report 16854817 (Version 1)
Quarter: 2019Q3

REPORT INFORMATION
  Report Type: Spontaneous
  Country: US (occurrence: US)
  Receive Date: 20190805
  Receipt Date: 20190805
  Transmission Date: 20191005
  Serious: Yes (Hospitalization)
  Sender: FDA-Public Use
  Company Number: None

PATIENT
  Sex: Male

DRUGS (1)
  1. STELARA [Suspect]
     Active Substance: USTEKINUMAB
     Indication: CROHN^S DISEASE
     Dosage: EVERY 4 WEEKS
     Route: 058
     Dates: start: 201908

REACTIONS (4)
  - Diarrhoea [None]
  - Inflammation [None]
  - Therapy non-responder [None]
  - Fatigue [None]
